FAERS Safety Report 9160924 (Version 5)
Quarter: 2013Q3

REPORT INFORMATION
  Report Type: Spontaneous
  Country: US (occurrence: US)
  Receive Date: 20130313
  Receipt Date: 20130712
  Transmission Date: 20140515
  Serious: Yes (Other)
  Sender: FDA-Public Use
  Company Number: US-PFIZER INC-2013084182

PATIENT
  Age: 67 Year
  Sex: Female
  Weight: 109 kg

DRUGS (2)
  1. LYRICA [Suspect]
     Indication: FIBROMYALGIA
     Dosage: 75 MG, 2X/DAY
     Route: 048
     Dates: start: 20130307, end: 20130511
  2. LYRICA [Suspect]
     Indication: BACK PAIN

REACTIONS (6)
  - Suicidal behaviour [Recovering/Resolving]
  - Drug ineffective [Unknown]
  - Muscle spasms [Not Recovered/Not Resolved]
  - Irritability [Recovering/Resolving]
  - Dizziness [Recovering/Resolving]
  - Fibromyalgia [Unknown]
